FAERS Safety Report 5264173-3 (Version None)
Quarter: 2007Q1

REPORT INFORMATION
  Report Type: 
  Country: None (occurrence: None)
  Receive Date: 20070313
  Receipt Date: 20070308
  Transmission Date: 20070707
  Serious: Yes (Other)
  Sender: FDA-Public Use
  Company Number: US-BOEHRINGER INGELHEIM PHARMACEUTICALS, INC.-2007-BP-00956PF

PATIENT
  Sex: Male

DRUGS (11)
  1. SPIRIVA [Suspect]
     Indication: LUNG NEOPLASM MALIGNANT
     Route: 055
     Dates: start: 20060101
  2. ADVAIR DISKUS 100/50 [Concomitant]
     Indication: ASTHMA PROPHYLAXIS
  3. FENTANYL [Concomitant]
     Indication: MUSCULOSKELETAL CHEST PAIN
  4. HYDROMORPHONE HCL [Concomitant]
     Indication: BREAKTHROUGH PAIN
  5. LIPITOR [Concomitant]
  6. LACTULOSE [Concomitant]
     Indication: FAECES HARD
  7. FLUDROCORTISON [Concomitant]
     Indication: ADRENAL DISORDER
  8. FLONASE [Concomitant]
     Indication: NASAL CONGESTION
  9. ALBUTEROL [Concomitant]
     Indication: ASTHMA PROPHYLAXIS
  10. ALBUTEROL [Concomitant]
  11. DESONIDE [Concomitant]
     Indication: CUTANEOUS SARCOIDOSIS

REACTIONS (2)
  - LYMPHOMA [None]
  - NEOPLASM MALIGNANT [None]
